FAERS Safety Report 9047214 (Version 1)
Quarter: 2013Q1

REPORT INFORMATION
  Report Type: Spontaneous
  Country: GB (occurrence: GB)
  Receive Date: 20130130
  Receipt Date: 20130130
  Transmission Date: 20140127
  Serious: Yes (Other)
  Sender: FDA-Public Use
  Company Number: GB-009507513-1301GBR009287

PATIENT
  Sex: Female

DRUGS (1)
  1. BOCEPREVIR [Suspect]
     Dosage: UNK

REACTIONS (3)
  - Transfusion [Unknown]
  - Haematuria [Unknown]
  - Anaemia [Unknown]
